FAERS Safety Report 21648464 (Version 2)
Quarter: 2023Q1

REPORT INFORMATION
  Report Type: Report from Study
  Country: BR (occurrence: BR)
  Receive Date: 20221128
  Receipt Date: 20230110
  Transmission Date: 20230417
  Serious: Yes (Hospitalization)
  Sender: FDA-Public Use
  Company Number: BR-BIOGEN-2022BI01171738

PATIENT
  Age: 41 Year
  Sex: Female
  Weight: 75 kg

DRUGS (11)
  1. AVONEX PEN [Suspect]
     Active Substance: INTERFERON BETA-1A
     Indication: Multiple sclerosis
     Route: 050
     Dates: start: 2020, end: 202211
  2. AVONEX PEN [Suspect]
     Active Substance: INTERFERON BETA-1A
     Route: 050
     Dates: start: 2020
  3. AVONEX PEN [Suspect]
     Active Substance: INTERFERON BETA-1A
  4. AVONEX PEN [Suspect]
     Active Substance: INTERFERON BETA-1A
  5. PANTOPRAZOLE [Concomitant]
     Active Substance: PANTOPRAZOLE
     Indication: Gastric disorder
     Route: 050
     Dates: start: 2019
  6. Velija (Duloxetine Hydrochloride) [Concomitant]
     Indication: Anxiety
     Route: 050
     Dates: start: 2018
  7. Velija (Duloxetine Hydrochloride) [Concomitant]
     Route: 050
     Dates: start: 2019
  8. ALTA D [Concomitant]
     Indication: Multiple sclerosis
     Route: 050
     Dates: start: 2020
  9. PREGABALIN [Concomitant]
     Active Substance: PREGABALIN
     Indication: Multiple sclerosis
     Route: 050
     Dates: start: 2020
  10. PREGABALIN [Concomitant]
     Active Substance: PREGABALIN
     Dosage: 2 TABLETS
     Route: 050
  11. CALCIUM [Concomitant]
     Active Substance: CALCIUM
     Indication: Supplementation therapy
     Route: 050
     Dates: start: 202210

REACTIONS (2)
  - Multiple sclerosis relapse [Not Recovered/Not Resolved]
  - Peripheral swelling [Not Recovered/Not Resolved]

NARRATIVE: CASE EVENT DATE: 20221016
